FAERS Safety Report 8295041-0 (Version None)
Quarter: 2012Q2

REPORT INFORMATION
  Report Type: 
  Country: None (occurrence: None)
  Receive Date: 20120418
  Receipt Date: 20120409
  Transmission Date: 20120825
  Serious: Yes (Hospitalization)
  Sender: FDA-Public Use
  Company Number: TW-TEVA-332681ISR

PATIENT
  Sex: Female

DRUGS (4)
  1. DACTINOMYCIN [Suspect]
     Indication: GESTATIONAL TROPHOBLASTIC TUMOUR
     Dosage: 0.5 MG/DAY FOR 5 DAYS PER COURSE
     Route: 042
     Dates: start: 19821101
  2. ETOPOSIDE [Suspect]
     Indication: GESTATIONAL TROPHOBLASTIC TUMOUR
     Dosage: 100MG 1 AMP EVERY DAY FOR 5 DAYS PER COURSE
     Route: 042
     Dates: start: 19821101
  3. METHOTREXATE [Suspect]
     Indication: GESTATIONAL TROPHOBLASTIC TUMOUR
     Dosage: 50 MG/DAY FOR 5 DAYS PER COURSE
     Route: 065
     Dates: start: 19821101
  4. MERCAPTOPURINE [Suspect]
     Indication: GESTATIONAL TROPHOBLASTIC TUMOUR
     Dosage: 75 MG/DAY FOR 7 DAYS PER COURSE
     Route: 065
     Dates: start: 19821101

REACTIONS (1)
  - VAGINAL CANCER [None]
